FAERS Safety Report 13042729 (Version 1)
Quarter: 2016Q4

REPORT INFORMATION
  Report Type: Spontaneous
  Country: US (occurrence: US)
  Receive Date: 20161219
  Receipt Date: 20161219
  Transmission Date: 20170207
  Serious: No
  Sender: FDA-Public Use
  Company Number: US-SEPTODONT-201603530

PATIENT
  Sex: Female

DRUGS (3)
  1. BENZOCAINE. [Concomitant]
     Active Substance: BENZOCAINE
  2. NO DRUG NAME [Concomitant]
  3. SCANDONEST PLAIN [Suspect]
     Active Substance: MEPIVACAINE HYDROCHLORIDE
     Indication: LOCAL ANAESTHESIA
     Dosage: 1 CARPULE FOR INITIAL, THEN ADDED 1 - 2 MORE FOR A TOTAL OF 3 CARPULES. INJECTED VIA WAND 30G 1 INCH
     Route: 004

REACTIONS (4)
  - Pain [Unknown]
  - Sensitivity of teeth [None]
  - Drug ineffective [Recovered/Resolved with Sequelae]
  - Procedural complication [None]

NARRATIVE: CASE EVENT DATE: 20160707
